FAERS Safety Report 10010125 (Version 2)
Quarter: 2014Q1

REPORT INFORMATION
  Report Type: Spontaneous
  Country: US (occurrence: US)
  Receive Date: 20140312
  Receipt Date: 20140312
  Transmission Date: 20141002
  Serious: No
  Sender: FDA-Public Use
  Company Number: US-INCYTE CORPORATION-2013IN001249

PATIENT
  Age: 63 Year
  Sex: Female

DRUGS (2)
  1. JAKAFI [Suspect]
     Indication: MYELOFIBROSIS
     Dosage: 5 MG, BID
     Route: 048
     Dates: start: 201302
  2. ASPIRIN [Concomitant]
     Dosage: LOW DOSE ASPIRIN

REACTIONS (5)
  - Epistaxis [Unknown]
  - Contusion [Unknown]
  - Petechiae [Unknown]
  - Platelet count decreased [Unknown]
  - Malaise [Unknown]
